FAERS Safety Report 6729782-0 (Version None)
Quarter: 2010Q2

REPORT INFORMATION
  Report Type: 
  Country: None (occurrence: None)
  Receive Date: 20100513
  Receipt Date: 20100504
  Transmission Date: 20101027
  Serious: Yes (Hospitalization)
  Sender: FDA-Public Use
  Company Number: 003149

PATIENT
  Age: 38 Year
  Sex: Female
  Weight: 80 kg

DRUGS (5)
  1. KEPPRA [Suspect]
     Indication: EPILEPSY
     Dosage: (1000 MG BID INTRAVENOUS (NOT OTHERWISE SPECIFIED))
     Route: 042
     Dates: start: 20091110, end: 20091115
  2. FORTECORTIN /00016001/ (FORTECORTIN) (NOT SPECIFIED) [Suspect]
     Indication: OEDEMA
     Dosage: (6 MG, 1-1/2-0 ORAL)
     Route: 048
     Dates: start: 20090921
  3. PANTOLAC /01263201/ (PANTOLOC) (NOT SPECIFIED) [Suspect]
     Indication: PROPHYLAXIS
     Dosage: (40 MG QD, 1-0-0 ORAL)
     Route: 048
     Dates: start: 20090921
  4. TEMODAL [Suspect]
     Indication: GLIOBLASTOMA
     Dosage: (125 MG QD ORAL)
     Route: 048
     Dates: start: 20090921
  5. EPILAN-D (EPILAN D) [Suspect]

REACTIONS (5)
  - DYSPHAGIA [None]
  - HYPERSENSITIVITY [None]
  - PRURITUS [None]
  - RASH GENERALISED [None]
  - URTICARIA [None]
